FAERS Safety Report 11197937 (Version 1)
Quarter: 2015Q2

REPORT INFORMATION
  Report Type: Spontaneous
  Country: US (occurrence: US)
  Receive Date: 20150617
  Receipt Date: 20150617
  Transmission Date: 20150821
  Serious: No
  Sender: FDA-Public Use
  Company Number: US-GALDERMA-US15001963

PATIENT
  Age: 25 Year
  Sex: Female

DRUGS (6)
  1. BENZYOL PEROXIDE CLINDAMYCIN TOPICAL [Concomitant]
     Route: 061
  2. MIRVASO [Suspect]
     Active Substance: BRIMONIDINE TARTRATE
     Indication: ERYTHEMA
     Dosage: 0.33%
     Route: 061
     Dates: start: 2014
  3. UNKNOWN BIRTH CONTROL [Concomitant]
     Active Substance: UNSPECIFIED INGREDIENT
     Route: 048
  4. TRETINOIN TOPICAL [Concomitant]
     Route: 061
  5. UNKNOWN MOISTURIZER [Concomitant]
     Route: 061
  6. UNKNOWN SUNSCREEN [Concomitant]
     Route: 061

REACTIONS (1)
  - Rebound effect [Not Recovered/Not Resolved]
